FAERS Safety Report 21734950 (Version 1)
Quarter: 2022Q4

REPORT INFORMATION
  Report Type: Spontaneous
  Country: US (occurrence: US)
  Receive Date: 20221215
  Receipt Date: 20221215
  Transmission Date: 20230113
  Serious: No
  Sender: FDA-Public Use
  Company Number: US-ALLERGAN-2236209US

PATIENT
  Sex: Male

DRUGS (2)
  1. PREDNISOLONE ACETATE [Suspect]
     Active Substance: PREDNISOLONE ACETATE
     Indication: Postoperative care
     Dosage: 1 GTT
     Route: 047
  2. UNSPECIFIED INGREDIENT [Suspect]
     Active Substance: UNSPECIFIED INGREDIENT
     Indication: Postoperative care
     Dosage: UNK
     Route: 047

REACTIONS (4)
  - Lacrimation increased [Unknown]
  - Accidental exposure to product [Unknown]
  - Eye irritation [Unknown]
  - Eye pain [Unknown]
